FAERS Safety Report 5775017-5 (Version None)
Quarter: 2008Q2

REPORT INFORMATION
  Report Type: 
  Country: None (occurrence: None)
  Receive Date: 20080612
  Receipt Date: 20080529
  Transmission Date: 20081010
  Serious: Yes (Death)
  Sender: FDA-Public Use
  Company Number: 2008AL006036

PATIENT
  Age: 87 Year
  Sex: Male
  Weight: 79.3795 kg

DRUGS (1)
  1. DIGOXIN [Suspect]

REACTIONS (2)
  - MALAISE [None]
  - SUDDEN DEATH [None]
